FAERS Safety Report 20991000 (Version 3)
Quarter: 2022Q3

REPORT INFORMATION
  Report Type: Spontaneous
  Country: US (occurrence: US)
  Receive Date: 20220622
  Receipt Date: 20220908
  Transmission Date: 20221027
  Serious: No
  Sender: FDA-Public Use
  Company Number: US-Calliditas-2022CAL00139

PATIENT
  Age: 63 Year
  Sex: Male

DRUGS (12)
  1. TARPEYO [Suspect]
     Active Substance: BUDESONIDE
     Indication: Haematuria
     Dosage: 16 MG (4 MG CAPSULES) ONCE DAILY
     Route: 048
     Dates: start: 20220602
  2. AMLODIPINE [Concomitant]
     Active Substance: AMLODIPINE BESYLATE
     Dosage: 10 MG
  3. FARXIGA [Concomitant]
     Active Substance: DAPAGLIFLOZIN PROPANEDIOL
     Dosage: 10 MG
  4. METOPROLOL SUCCINATE [Concomitant]
     Active Substance: METOPROLOL SUCCINATE
     Dosage: 25 MG
  5. CRESTOR [Concomitant]
     Active Substance: ROSUVASTATIN CALCIUM
     Dosage: 10 MG
  6. VASCEPA [Concomitant]
     Active Substance: ICOSAPENT ETHYL
  7. VALSARTAN [Concomitant]
     Active Substance: VALSARTAN
     Dosage: 320 MG
  8. D3 VITAMINS [Concomitant]
     Dosage: 50 ?G
  9. VITAMINA K2 [Concomitant]
     Dosage: 500 ?G
  10. NICOTINAMIDE MONONUCLEOTIDE [Concomitant]
     Active Substance: NICOTINAMIDE MONONUCLEOTIDE
     Dosage: 6 CAPSULES TID ; TIME INTERVAL:
  11. FARXIGA [Suspect]
     Active Substance: DAPAGLIFLOZIN PROPANEDIOL
     Dosage: 10 MG
  12. LOVASTATIN [Concomitant]
     Active Substance: LOVASTATIN

REACTIONS (5)
  - Abdominal discomfort [Recovered/Resolved]
  - Blood pressure increased [Not Recovered/Not Resolved]
  - Thirst [Recovered/Resolved]
  - Feeling abnormal [Recovered/Resolved]
  - Gastrooesophageal reflux disease [Recovered/Resolved]

NARRATIVE: CASE EVENT DATE: 20220605
